FAERS Safety Report 20472027 (Version 2)
Quarter: 2022Q1

REPORT INFORMATION
  Report Type: Spontaneous
  Country: GR (occurrence: GR)
  Receive Date: 20220214
  Receipt Date: 20220324
  Transmission Date: 20220424
  Serious: Yes (Hospitalization, Other)
  Sender: FDA-Public Use
  Company Number: GR-009507513-2202GRC002575

PATIENT
  Age: 62 Year
  Sex: Male

DRUGS (2)
  1. BCG LIVE [Suspect]
     Active Substance: BACILLUS CALMETTE-GUERIN SUBSTRAIN TICE LIVE ANTIGEN
     Indication: Bladder cancer
     Dosage: UNK; FIRST COURSE
     Route: 043
  2. BCG LIVE [Suspect]
     Active Substance: BACILLUS CALMETTE-GUERIN SUBSTRAIN TICE LIVE ANTIGEN
     Dosage: UNK; SECOND COURSE
     Route: 043

REACTIONS (3)
  - Disseminated Bacillus Calmette-Guerin infection [Recovered/Resolved]
  - Hepatic cirrhosis [Recovering/Resolving]
  - Bone marrow granuloma [Unknown]
